FAERS Safety Report 10513521 (Version 1)
Quarter: 2014Q4

REPORT INFORMATION
  Report Type: Spontaneous
  Country: US (occurrence: US)
  Receive Date: 20141013
  Receipt Date: 20141013
  Transmission Date: 20150528
  Serious: No
  Sender: FDA-Public Use
  Company Number: US-ELI_LILLY_AND_COMPANY-US201409006421

PATIENT
  Sex: Female

DRUGS (2)
  1. STRATTERA [Suspect]
     Active Substance: ATOMOXETINE HYDROCHLORIDE
     Dosage: 40 MG, UNKNOWN
     Route: 065
     Dates: start: 20140915
  2. STRATTERA [Suspect]
     Active Substance: ATOMOXETINE HYDROCHLORIDE
     Indication: PRODUCT USED FOR UNKNOWN INDICATION
     Dosage: 25 MG, UNKNOWN
     Route: 065
     Dates: end: 20140914

REACTIONS (2)
  - Nausea [Unknown]
  - Feeling of body temperature change [Unknown]

NARRATIVE: CASE EVENT DATE: 20140916
